FAERS Safety Report 6252179-7 (Version None)
Quarter: 2009Q2

REPORT INFORMATION
  Report Type: 
  Country: None (occurrence: None)
  Receive Date: 20090629
  Receipt Date: 20090618
  Transmission Date: 20091009
  Serious: Yes (Hospitalization)
  Sender: FDA-Public Use
  Company Number: 2008SP025557

PATIENT
  Age: 4 Year
  Sex: Male
  Weight: 20 kg

DRUGS (39)
  1. POSACONAZOLE [Suspect]
     Indication: PROPHYLAXIS
     Dosage: 120 MG; BID; PO
     Route: 048
     Dates: start: 20081124, end: 20081205
  2. METHOTREXATE [Suspect]
     Indication: ACUTE LYMPHOCYTIC LEUKAEMIA
     Dosage: 3900 MG; QD; IV
     Route: 042
     Dates: start: 20081219, end: 20081219
  3. VINDESINE (VINDESINE) [Suspect]
     Indication: LEUKAEMIA
     Dosage: 2.3 MG; QD; IV
     Route: 042
     Dates: start: 20081219, end: 20081219
  4. IFOSFAMIDE [Suspect]
     Indication: ACUTE LEUKAEMIA
     Dosage: 620 MG; BID; IV 620 MG; QD; IV
     Route: 042
     Dates: start: 20081220, end: 20081221
  5. IFOSFAMIDE [Suspect]
     Indication: ACUTE LEUKAEMIA
     Dosage: 620 MG; BID; IV 620 MG; QD; IV
     Route: 042
     Dates: start: 20081222, end: 20081222
  6. GRANISETRON HCL [Suspect]
     Indication: PROPHYLAXIS
     Dosage: 1 MG; IV
     Route: 042
     Dates: start: 20081219, end: 20081225
  7. DEXAMETHASONE TAB [Suspect]
     Indication: ACUTE LYMPHOCYTIC LEUKAEMIA
     Dosage: 5 MG; TID; PO
     Route: 048
     Dates: start: 20081219, end: 20081223
  8. FLUCONAZOLE [Concomitant]
  9. COTRIM [Concomitant]
  10. TAZOBAC [Concomitant]
  11. PLATELETS [Concomitant]
  12. GRANOCYTE [Concomitant]
  13. CYCLOPHOSPHAMIDE [Concomitant]
  14. UROMITEXAN [Concomitant]
  15. SODIUM CHLORIDE 0.9% [Concomitant]
  16. DEXTROSE 5% [Concomitant]
  17. POTASSIUM CHLORIDE [Concomitant]
  18. VINCRISTINE [Concomitant]
  19. ELSPAR [Concomitant]
  20. SODIUM BICARBONATE [Concomitant]
  21. LEUKOVORIN [Concomitant]
  22. ISOTODEX [Concomitant]
  23. BENADON [Concomitant]
  24. VOMEX [Concomitant]
  25. LEICICARBON [Concomitant]
  26. NACL 0.9% / GLUCOSE [Concomitant]
  27. KYBERNIN [Concomitant]
  28. PURINETHOL [Concomitant]
  29. PREDNISON [Concomitant]
  30. ARA-C [Concomitant]
  31. AMPHOTERICIN B [Concomitant]
  32. RED BLOOD CELL TRANSFUSION [Concomitant]
  33. METHOTREXATE [Concomitant]
  34. GRANISETRON HCL [Concomitant]
  35. LENOGASTRIM [Concomitant]
  36. VITAMIN B6 [Concomitant]
  37. NATRIUM HYDROGENCARBONATE [Concomitant]
  38. DAUNORUBICIN HCL [Concomitant]
  39. FOLINSAURE [VITAMINE B9] [Concomitant]

REACTIONS (8)
  - ALANINE AMINOTRANSFERASE INCREASED [None]
  - ASPARTATE AMINOTRANSFERASE INCREASED [None]
  - DRUG LEVEL INCREASED [None]
  - GAMMA-GLUTAMYLTRANSFERASE INCREASED [None]
  - HAEMATOCRIT DECREASED [None]
  - HAEMOGLOBIN DECREASED [None]
  - OEDEMA [None]
  - TRANSAMINASES INCREASED [None]
